FAERS Safety Report 8505317-7 (Version None)
Quarter: 2012Q3

REPORT INFORMATION
  Report Type: 
  Country: None (occurrence: None)
  Receive Date: 20120712
  Receipt Date: 20120706
  Transmission Date: 20120928
  Serious: Yes (Hospitalization)
  Sender: FDA-Public Use
  Company Number: BR-PFIZER INC-2012162502

PATIENT
  Age: 67 Year
  Sex: Male
  Weight: 98 kg

DRUGS (7)
  1. LYRICA [Suspect]
     Indication: SPINAL PAIN
     Dosage: 75 MG, 1X/DAY
     Route: 048
     Dates: start: 20120706
  2. MOTILIUM [Concomitant]
     Indication: DIABETES MELLITUS
     Dosage: THREE TABLETS DAILY
     Dates: start: 20120401
  3. CELEBREX [Suspect]
     Dosage: 200 MG, 2X/DAY
     Route: 048
     Dates: start: 20100817, end: 20100101
  4. PANTOPRAZOLE SODIUM [Concomitant]
     Indication: CARDIAC DISORDER
     Dosage: ONE TABLET DAILY
     Dates: start: 20120401
  5. INSULIN [Concomitant]
     Indication: DIABETES MELLITUS
     Dosage: 20 ML, 2X/DAY
     Dates: start: 20070101
  6. NORVASC [Concomitant]
     Indication: CARDIAC DISORDER
     Dosage: ONE TABLET DAILY
     Dates: start: 20120101
  7. JANUMET [Concomitant]
     Indication: DIABETES MELLITUS
     Dosage: ONE TABLET DAILY
     Dates: start: 20120101

REACTIONS (3)
  - SPINAL PAIN [None]
  - CARDIAC DISORDER [None]
  - DIABETIC FOOT [None]
